FAERS Safety Report 18755608 (Version 1)
Quarter: 2021Q1

REPORT INFORMATION
  Report Type: Spontaneous
  Country: US (occurrence: US)
  Receive Date: 20210119
  Receipt Date: 20210119
  Transmission Date: 20210419
  Serious: Yes (Other)
  Sender: FDA-Public Use
  Company Number: US-BAYER-2021-020683

PATIENT
  Age: 73 Year
  Sex: Male

DRUGS (2)
  1. ALKA?SELTZER ORIGINAL [Suspect]
     Active Substance: ANHYDROUS CITRIC ACID\ASPIRIN\SODIUM BICARBONATE
     Indication: DYSPEPSIA
  2. ALKA?SELTZER ORIGINAL [Suspect]
     Active Substance: ANHYDROUS CITRIC ACID\ASPIRIN\SODIUM BICARBONATE
     Indication: HEADACHE
     Dosage: EXCESSIVE EFFERVESCENT (6?8 TIMES PER DAY)

REACTIONS (5)
  - Product use issue [None]
  - Hiatus hernia [Recovering/Resolving]
  - Oesophagitis ulcerative [Recovering/Resolving]
  - Oesophageal stenosis [Recovering/Resolving]
  - Oesophagitis [Recovering/Resolving]

NARRATIVE: CASE EVENT DATE: 201911
